FAERS Safety Report 5891857-6 (Version None)
Quarter: 2008Q3

REPORT INFORMATION
  Report Type: 
  Country: None (occurrence: None)
  Receive Date: 20080922
  Receipt Date: 20080911
  Transmission Date: 20090109
  Serious: Yes (Other)
  Sender: FDA-Public Use
  Company Number: US-PFIZER INC-2008076668

PATIENT
  Sex: Male
  Weight: 99.09 kg

DRUGS (5)
  1. SUTENT [Suspect]
     Indication: RENAL CELL CARCINOMA
     Dates: start: 20080801, end: 20080910
  2. TAMBOCOR [Concomitant]
  3. ALLEGRA [Concomitant]
  4. ALBUTEROL SPIROS [Concomitant]
  5. ADVAIR DISKUS 100/50 [Concomitant]

REACTIONS (1)
  - ATRIAL FIBRILLATION [None]
